FAERS Safety Report 4305784-9 (Version None)
Quarter: 2004Q1

REPORT INFORMATION
  Report Type: 
  Country: None (occurrence: None)
  Receive Date: 20040226
  Receipt Date: 20040226
  Transmission Date: 20041129
  Serious: Yes (Other)
  Sender: FDA-Public Use
  Company Number: None

PATIENT
  Age: 47 Year
  Sex: Female
  Weight: 86.1834 kg

DRUGS (3)
  1. ZIAC [Suspect]
     Indication: ARTERIOSCLEROSIS
     Dosage: ONCE A DAY ONE PILL
  2. ZIAC [Suspect]
     Indication: HYPERTENSION
     Dosage: ONCE A DAY ONE PILL
  3. ATENOLOL [Concomitant]

REACTIONS (4)
  - ANGINA PECTORIS [None]
  - MUSCLE DISORDER [None]
  - PALPITATIONS [None]
  - PHARMACEUTICAL PRODUCT COMPLAINT [None]
